FAERS Safety Report 4706208-X (Version None)
Quarter: 2005Q2

REPORT INFORMATION
  Report Type: 
  Country: None (occurrence: None)
  Receive Date: 20050627
  Receipt Date: 20050322
  Transmission Date: 20051028
  Serious: No
  Sender: FDA-Public Use
  Company Number: IND-AE-05-SAN-014

PATIENT
  Age: 75 Year
  Sex: Female
  Weight: 79.3795 kg

DRUGS (3)
  1. SANCTURA [Suspect]
     Indication: HYPERTONIC BLADDER
     Dosage: 20MG-BID-ORAL
     Route: 048
     Dates: start: 20050302, end: 20050320
  2. SYNTHROID [Concomitant]
  3. NITROFURANTOIN [Concomitant]

REACTIONS (4)
  - DRY MOUTH [None]
  - FATIGUE [None]
  - HEADACHE [None]
  - RASH [None]
